FAERS Safety Report 4874910-5 (Version None)
Quarter: 2006Q1

REPORT INFORMATION
  Report Type: 
  Country: None (occurrence: None)
  Receive Date: 20060109
  Receipt Date: 20060103
  Transmission Date: 20060701
  Serious: Yes (Hospitalization)
  Sender: FDA-Public Use
  Company Number: 2006CG00014

PATIENT
  Age: 57 Year
  Sex: Male
  Weight: 88 kg

DRUGS (9)
  1. NEXIUM [Suspect]
     Route: 048
     Dates: end: 20051028
  2. LOGIMAX [Suspect]
     Dosage: 5 + 50 MG DAILY
     Route: 048
     Dates: end: 20051028
  3. ALDACTONE [Concomitant]
     Route: 048
  4. LASILIX [Concomitant]
     Route: 048
  5. LOXEN [Concomitant]
     Route: 048
  6. AMAREL [Concomitant]
     Route: 048
  7. PYOSTACINE [Concomitant]
     Dates: start: 20051007
  8. SPECIAFOLDINE [Concomitant]
  9. PARACETAMOL [Concomitant]

REACTIONS (3)
  - HYPERKALAEMIA [None]
  - PANCYTOPENIA [None]
  - SINUS BRADYCARDIA [None]
